FAERS Safety Report 5356435-6 (Version None)
Quarter: 2007Q2

REPORT INFORMATION
  Report Type: 
  Country: None (occurrence: None)
  Receive Date: 20070612
  Receipt Date: 20070604
  Transmission Date: 20071010
  Serious: Yes (Other)
  Sender: FDA-Public Use
  Company Number: 100#08#2007-01863

PATIENT
  Age: 15 Year
  Sex: Female

DRUGS (4)
  1. MEDROXYPROGESTERONE [Suspect]
     Indication: MENORRHAGIA
     Dosage: 5 MG (ONCE DAILY)
     Route: 048
  2. ETHINYL ESTRADIOL AND LEVONORGESTREL [Suspect]
     Indication: MENORRHAGIA
     Dosage: 0.02 MG/0.10 MG (FOR ONE CYCLE)
  3. ETHINYLESTRADIOL/DESOGESTREL (ETHINYLESTRADIOL, DESOGESTREL) [Suspect]
     Indication: MENORRHAGIA
     Dosage: 0.02 MG/0.15 MG
  4. VALPROIC ACID [Concomitant]

REACTIONS (2)
  - ANGIOMYOLIPOMA [None]
  - RENAL DISORDER [None]
